FAERS Safety Report 18955575 (Version 3)
Quarter: 2021Q3

REPORT INFORMATION
  Report Type: Spontaneous
  Country: CA (occurrence: CA)
  Receive Date: 20210301
  Receipt Date: 20210802
  Transmission Date: 20211014
  Serious: Yes (Other)
  Sender: FDA-Public Use
  Company Number: CA-PFIZER INC-2021200338

PATIENT
  Sex: Female

DRUGS (24)
  1. CLOTRIMAZOLE. [Interacting]
     Active Substance: CLOTRIMAZOLE
     Indication: RASH
     Dosage: UNK, 2X/DAY
     Route: 065
  2. CLOZAPINE. [Interacting]
     Active Substance: CLOZAPINE
     Dosage: 3 DF, 1X/DAY
     Route: 065
  3. APO RANITIDINE [Interacting]
     Active Substance: RANITIDINE
     Dosage: 150 MG, 2X/DAY
     Route: 065
  4. AMLODIPINE BESILATE [Suspect]
     Active Substance: AMLODIPINE BESYLATE
     Dosage: 1 DF, 1X/DAY
     Route: 065
  5. ACETAMINOPHEN;CAFFEINE [Suspect]
     Active Substance: ACETAMINOPHEN\CAFFEINE
     Indication: PYREXIA
     Dosage: 2 DF
     Route: 065
  6. VITAMIN D3 [Interacting]
     Active Substance: CHOLECALCIFEROL
     Dosage: 1 DF
  7. PREMARIN [Interacting]
     Active Substance: ESTROGENS, CONJUGATED
     Dosage: 0.5 G
     Route: 061
  8. ARIPIPRAZOLE. [Interacting]
     Active Substance: ARIPIPRAZOLE
     Dosage: UNK
     Route: 065
  9. OLANZAPINE. [Interacting]
     Active Substance: OLANZAPINE
     Indication: MOOD ALTERED
     Dosage: 1 DF, 1X/DAY
     Route: 065
  10. OLANZAPINE. [Interacting]
     Active Substance: OLANZAPINE
     Dosage: 1 DF, 2X/DAY
     Route: 065
  11. ACETAMINOPHEN;CAFFEINE [Suspect]
     Active Substance: ACETAMINOPHEN\CAFFEINE
     Indication: PAIN
  12. ALUMINUM HYDROXIDE [ALUMINIUM HYDROXIDE] [Suspect]
     Active Substance: ALUMINUM HYDROXIDE
     Indication: ABDOMINAL DISCOMFORT
     Dosage: 30 ML
     Route: 048
  13. REXULTI [Interacting]
     Active Substance: BREXPIPRAZOLE
     Dosage: UNK
     Route: 065
  14. DEPAKOTE [Interacting]
     Active Substance: DIVALPROEX SODIUM
     Dosage: 1 DF, 2X/DAY
     Route: 065
  15. ZOPICLONE [Interacting]
     Active Substance: ZOPICLONE
     Indication: INSOMNIA
     Dosage: 1 DF, 1X/DAY
     Route: 065
  16. ACETAMINOPHEN. [Interacting]
     Active Substance: ACETAMINOPHEN
     Indication: PAIN
  17. ESTRADIOL. [Interacting]
     Active Substance: ESTRADIOL
     Dosage: 1 DF
     Route: 067
  18. FLUVIRAL [Interacting]
     Active Substance: INFLUENZA VIRUS VACCINE
     Dosage: UNK
     Route: 065
  19. LEVOTHYROXINE. [Interacting]
     Active Substance: LEVOTHYROXINE
     Dosage: 1 DF
     Route: 065
  20. OLANZAPINE. [Interacting]
     Active Substance: OLANZAPINE
     Indication: ELECTROCARDIOGRAM QT PROLONGED
     Dosage: UNK
     Route: 065
  21. CHOLECALCIFEROL [Interacting]
     Active Substance: CHOLECALCIFEROL
     Dosage: UNK
     Route: 065
  22. CLOZAPINE. [Interacting]
     Active Substance: CLOZAPINE
     Indication: SCHIZOPHRENIA
     Dosage: 1 DF, 1X/DAY
     Route: 065
  23. ALMAGEL [ALMAGATE] [Interacting]
     Active Substance: ALMAGATE
     Indication: ABDOMINAL DISCOMFORT
     Dosage: 30 ML
     Route: 048
  24. ACETAMINOPHEN. [Interacting]
     Active Substance: ACETAMINOPHEN
     Indication: PYREXIA
     Dosage: 2 DF

REACTIONS (4)
  - Electrocardiogram QT prolonged [Unknown]
  - Schizoaffective disorder [Unknown]
  - Drug interaction [Unknown]
  - Drug level increased [Unknown]
